FAERS Safety Report 4376231-6 (Version None)
Quarter: 2004Q2

REPORT INFORMATION
  Report Type: 
  Country: None (occurrence: None)
  Receive Date: 20040608
  Receipt Date: 20030331
  Transmission Date: 20050107
  Serious: Yes (Other)
  Sender: FDA-Public Use
  Company Number: 200311082BCC

PATIENT
  Age: 62 Year
  Sex: Female
  Weight: 54.4316 kg

DRUGS (1)
  1. ALEVE [Suspect]
     Indication: BACK DISORDER
     Dosage: 440 MG, HS, ORAL
     Route: 048
     Dates: start: 20020801, end: 20030326

REACTIONS (3)
  - GASTROINTESTINAL ULCER HAEMORRHAGE [None]
  - HAEMATOCHEZIA [None]
  - SYNCOPE [None]
